FAERS Safety Report 8967302 (Version 1)
Quarter: 2012Q4

REPORT INFORMATION
  Report Type: 
  Country: US (occurrence: US)
  Receive Date: 20121214
  Receipt Date: 20121214
  Transmission Date: 20130627
  Serious: No
  Sender: FDA-Public Use
  Company Number: US-GLAXOSMITHKLINE-A0984486A

PATIENT
  Sex: Female

DRUGS (2)
  1. FLONASE [Suspect]
     Indication: SINUS DISORDER
     Dosage: 2SPR See dosage text
     Route: 045
     Dates: start: 2000, end: 201204
  2. NONE [Concomitant]

REACTIONS (1)
  - Headache [Recovered/Resolved]
